FAERS Safety Report 5238147-2 (Version None)
Quarter: 2007Q1

REPORT INFORMATION
  Report Type: 
  Country: None (occurrence: None)
  Receive Date: 20061208
  Receipt Date: 20050524
  Transmission Date: 20070707
  Serious: Yes (Other)
  Sender: FDA-Public Use
  Company Number: 2005UW07992

PATIENT
  Age: 76 Year
  Sex: Female
  Weight: 65.77 kg

DRUGS (3)
  1. CRESTOR [Suspect]
     Indication: BLOOD CHOLESTEROL INCREASED
     Dosage: 10 MG PO
     Route: 048
     Dates: start: 20050501
  2. DIOVAN [Concomitant]
  3. THYROID TAB [Concomitant]

REACTIONS (2)
  - ASTHENIA [None]
  - FEELING ABNORMAL [None]
